FAERS Safety Report 23045285 (Version 1)
Quarter: 2023Q4

REPORT INFORMATION
  Report Type: Spontaneous
  Country: US (occurrence: US)
  Receive Date: 20231009
  Receipt Date: 20231009
  Transmission Date: 20240110
  Serious: No
  Sender: FDA-Public Use
  Company Number: US-SA-SAC20231003001841

PATIENT
  Sex: Female

DRUGS (1)
  1. DUPIXENT [Suspect]
     Active Substance: DUPILUMAB
     Dosage: 200MG FREQUENCY: OTHER
     Route: 058

REACTIONS (3)
  - Condition aggravated [Unknown]
  - Ocular hyperaemia [Unknown]
  - Therapeutic response shortened [Unknown]
